FAERS Safety Report 6150119-2 (Version None)
Quarter: 2009Q2

REPORT INFORMATION
  Report Type: 
  Country: None (occurrence: None)
  Receive Date: 20090407
  Receipt Date: 20090326
  Transmission Date: 20091009
  Serious: Yes (Other)
  Sender: FDA-Public Use
  Company Number: 2009SP006754

PATIENT
  Age: 60 Year
  Sex: Female

DRUGS (3)
  1. PEG-INTRON [Suspect]
     Indication: HEPATITIS C
     Dosage: 180 MCG; QW; SC
     Route: 058
     Dates: start: 20080926, end: 20081107
  2. RIBAVIRIN [Suspect]
     Indication: HEPATITIS C
     Dosage: 1 GM; QD; PO
     Route: 048
     Dates: start: 20080925, end: 20081107
  3. RITUXIMAB [Concomitant]

REACTIONS (7)
  - ASTHENIA [None]
  - DRY SKIN [None]
  - ERYTHEMA [None]
  - INJECTION SITE HAEMATOMA [None]
  - MUCOSAL DRYNESS [None]
  - MUSCULAR WEAKNESS [None]
  - TREMOR [None]
